FAERS Safety Report 14353758 (Version 2)
Quarter: 2018Q1

REPORT INFORMATION
  Report Type: Report from Study
  Country: US (occurrence: US)
  Receive Date: 20180105
  Receipt Date: 20180117
  Transmission Date: 20180509
  Serious: Yes (Hospitalization, Other)
  Sender: FDA-Public Use
  Company Number: US-GILEAD-2017-0312023

PATIENT
  Age: 58 Year
  Sex: Female

DRUGS (5)
  1. AMBRISENTAN [Suspect]
     Active Substance: AMBRISENTAN
     Indication: PULMONARY HYPERTENSION
     Dosage: 5 MG, QD
     Route: 065
     Dates: start: 20170605, end: 20171212
  2. GABAPENTIN. [Concomitant]
     Active Substance: GABAPENTIN
  3. KEPPRA [Concomitant]
     Active Substance: LEVETIRACETAM
  4. PREDNISONE. [Concomitant]
     Active Substance: PREDNISONE
  5. FOLIC ACID. [Concomitant]
     Active Substance: FOLIC ACID

REACTIONS (3)
  - Product use issue [Unknown]
  - Dyspnoea [Unknown]
  - Treatment noncompliance [Unknown]
